FAERS Safety Report 7387469-8 (Version None)
Quarter: 2011Q1

REPORT INFORMATION
  Report Type: 
  Country: None (occurrence: None)
  Receive Date: 20110331
  Receipt Date: 20110322
  Transmission Date: 20110831
  Serious: Yes (Death, Other)
  Sender: FDA-Public Use
  Company Number: US-BAXTER-2009BH015109

PATIENT
  Age: 58 Year
  Sex: Male
  Weight: 120 kg

DRUGS (31)
  1. CARVEDILOL [Concomitant]
     Indication: PRODUCT USED FOR UNKNOWN INDICATION
     Route: 065
  2. ALPRAZOLAM [Concomitant]
     Indication: PRODUCT USED FOR UNKNOWN INDICATION
     Route: 065
  3. MAGNESIUM SULFATE [Concomitant]
     Indication: PRODUCT USED FOR UNKNOWN INDICATION
     Route: 065
  4. OTHER CHEMOTHERAPEUTICS [Concomitant]
     Indication: METASTATIC CARCINOMA OF THE BLADDER
     Route: 065
     Dates: start: 20070921, end: 20070926
  5. PACLITAXEL [Concomitant]
     Indication: METASTATIC CARCINOMA OF THE BLADDER
     Route: 065
     Dates: start: 20070906, end: 20070906
  6. HEPARIN SODIUM INJECTION [Suspect]
     Indication: CHEMOTHERAPY
     Route: 042
     Dates: start: 20070922
  7. ZOCOR [Concomitant]
     Indication: PRODUCT USED FOR UNKNOWN INDICATION
     Route: 065
  8. ONDANSETRON HYDROCHLORIDE [Concomitant]
     Indication: PRODUCT USED FOR UNKNOWN INDICATION
     Route: 065
  9. MAGNESIUM OXIDE [Concomitant]
     Indication: PRODUCT USED FOR UNKNOWN INDICATION
     Route: 065
  10. ISOSORBIDE MONONITRATE [Concomitant]
     Indication: PRODUCT USED FOR UNKNOWN INDICATION
     Route: 065
  11. NEULASTA [Concomitant]
     Indication: PRODUCT USED FOR UNKNOWN INDICATION
     Route: 065
  12. COMPAZINE [Concomitant]
     Indication: PRODUCT USED FOR UNKNOWN INDICATION
     Route: 065
  13. METOPROLOL [Concomitant]
     Indication: PRODUCT USED FOR UNKNOWN INDICATION
     Route: 065
  14. IMDUR [Concomitant]
     Indication: PRODUCT USED FOR UNKNOWN INDICATION
     Route: 065
  15. DEXAMETHASONE [Concomitant]
     Indication: PRODUCT USED FOR UNKNOWN INDICATION
     Route: 065
  16. LISINOPRIL [Concomitant]
     Route: 065
  17. COREG [Concomitant]
     Indication: PRODUCT USED FOR UNKNOWN INDICATION
     Route: 065
  18. MAALOX                                  /USA/ [Concomitant]
     Indication: PRODUCT USED FOR UNKNOWN INDICATION
     Route: 065
  19. ETOPOSIDE [Concomitant]
     Indication: PRODUCT USED FOR UNKNOWN INDICATION
     Route: 065
  20. LASIX [Concomitant]
     Indication: PRODUCT USED FOR UNKNOWN INDICATION
     Route: 065
  21. MORPHINE [Concomitant]
     Indication: PRODUCT USED FOR UNKNOWN INDICATION
     Route: 065
  22. HEPARIN LOCK-FLUSH [Suspect]
     Indication: PRODUCT USED FOR UNKNOWN INDICATION
     Route: 065
  23. LISINOPRIL [Concomitant]
     Indication: PRODUCT USED FOR UNKNOWN INDICATION
     Route: 065
  24. PROTONIX [Concomitant]
     Indication: PRODUCT USED FOR UNKNOWN INDICATION
     Route: 065
  25. CISPLATIN [Concomitant]
     Indication: PRODUCT USED FOR UNKNOWN INDICATION
     Route: 065
  26. PLAVIX [Concomitant]
     Indication: PRODUCT USED FOR UNKNOWN INDICATION
     Route: 065
  27. REGLAN [Concomitant]
     Indication: NAUSEA
     Route: 048
  28. NEUPOGEN [Concomitant]
     Indication: PRODUCT USED FOR UNKNOWN INDICATION
     Route: 065
  29. WELLBUTRIN [Concomitant]
     Indication: PRODUCT USED FOR UNKNOWN INDICATION
     Route: 065
  30. NITROGLYCERIN [Concomitant]
     Indication: CHEST PAIN
     Route: 060
  31. GEMCITABINE [Concomitant]
     Indication: METASTATIC CARCINOMA OF THE BLADDER
     Route: 065
     Dates: start: 20070906, end: 20070906

REACTIONS (21)
  - PNEUMONIA [None]
  - FEBRILE NEUTROPENIA [None]
  - GASTROOESOPHAGEAL REFLUX DISEASE [None]
  - CYANOSIS [None]
  - FALL [None]
  - ACUTE RESPIRATORY FAILURE [None]
  - NAUSEA [None]
  - RESPIRATORY DISTRESS [None]
  - DISSEMINATED INTRAVASCULAR COAGULATION [None]
  - CHEST PAIN [None]
  - HYPOTENSION [None]
  - PYREXIA [None]
  - DIARRHOEA [None]
  - THROMBOCYTOPENIA [None]
  - SEPSIS [None]
  - RENAL FAILURE ACUTE [None]
  - ASTHENIA [None]
  - PALLOR [None]
  - PANCYTOPENIA [None]
  - LOSS OF CONSCIOUSNESS [None]
  - DIZZINESS [None]
